FAERS Safety Report 4773852-3 (Version None)
Quarter: 2005Q3

REPORT INFORMATION
  Report Type: 
  Country: None (occurrence: None)
  Receive Date: 20050919
  Receipt Date: 20050906
  Transmission Date: 20060218
  Serious: Yes (Death, Life-Threatening, Hospitalization)
  Sender: FDA-Public Use
  Company Number: HQWYE265706SEP05

PATIENT
  Age: 78 Year
  Sex: Female

DRUGS (9)
  1. ETODOLAC [Suspect]
     Indication: RHEUMATOID ARTHRITIS
     Dosage: 400 MG 1X PER 1 DAY
     Route: 048
     Dates: start: 20050419, end: 20050610
  2. SALAZOSULFAPYRIDINE (SULFSALAZINE) [Concomitant]
  3. PREDNISONE [Concomitant]
  4. FAMOTIDINE [Concomitant]
  5. TICLOPIDINE HCL [Concomitant]
  6. ALFACALCIDOL (ALFACALCIDOL) [Concomitant]
  7. MAGNESIUM OXIDE (MAGNESIUM OXIDE) [Concomitant]
  8. KETOPROFEN [Concomitant]
  9. UROSFALK (URSODEOXYCHOLIC ACID) [Concomitant]

REACTIONS (5)
  - BILIARY TRACT DISORDER [None]
  - HAEMATOCRIT DECREASED [None]
  - HEPATIC FAILURE [None]
  - JAUNDICE [None]
  - PLATELET COUNT DECREASED [None]
